FAERS Safety Report 21705281 (Version 1)
Quarter: 2022Q4

REPORT INFORMATION
  Report Type: Spontaneous
  Country: ES (occurrence: ES)
  Receive Date: 20221209
  Receipt Date: 20221209
  Transmission Date: 20230112
  Serious: Yes (Hospitalization)
  Sender: FDA-Public Use
  Company Number: None

PATIENT
  Age: 72 Year
  Sex: Female

DRUGS (1)
  1. FUROSEMIDE [Suspect]
     Active Substance: FUROSEMIDE
     Indication: Pleural effusion
     Dates: start: 20220215, end: 20220218

REACTIONS (3)
  - Arrhythmia [Recovered/Resolved]
  - Hypokalaemia [Recovered/Resolved]
  - Electrocardiogram U wave present [Recovered/Resolved]

NARRATIVE: CASE EVENT DATE: 20220219
